FAERS Safety Report 7509394-1 (Version None)
Quarter: 2011Q2

REPORT INFORMATION
  Report Type: 
  Country: None (occurrence: None)
  Receive Date: 20110527
  Receipt Date: 20110523
  Transmission Date: 20111010
  Serious: Yes (Other)
  Sender: FDA-Public Use
  Company Number: US-PFIZER INC-2010138786

PATIENT
  Sex: Female

DRUGS (2)
  1. CHANTIX [Suspect]
     Indication: SMOKING CESSATION THERAPY
     Dosage: UNK
     Dates: start: 20090501, end: 20090601
  2. LEVOTHYROXINE [Concomitant]
     Indication: THYROID DISORDER
     Dosage: UNK
     Dates: start: 20050101

REACTIONS (8)
  - HOMICIDAL IDEATION [None]
  - PARANOIA [None]
  - HALLUCINATION [None]
  - AGGRESSION [None]
  - COGNITIVE DISORDER [None]
  - DEPRESSION [None]
  - ANXIETY [None]
  - ANGER [None]
